FAERS Safety Report 18590008 (Version 1)
Quarter: 2020Q4

REPORT INFORMATION
  Report Type: Spontaneous
  Country: US (occurrence: US)
  Receive Date: 20201207
  Receipt Date: 20201207
  Transmission Date: 20210114
  Serious: Yes (Life-Threatening, Hospitalization)
  Sender: FDA-Public Use
  Company Number: None

PATIENT
  Age: 80 Year
  Sex: Female
  Weight: 62.9 kg

DRUGS (3)
  1. BINIMETINIB [Concomitant]
     Active Substance: BINIMETINIB
     Dates: start: 20201112, end: 20201202
  2. NIVOLUMAB [Suspect]
     Active Substance: NIVOLUMAB
     Indication: IMMUNE-MEDIATED HEPATITIS
     Dosage: ?          OTHER FREQUENCY:ONCE EVERY 4 WEEKS;?
     Route: 041
     Dates: start: 20201112, end: 20201112
  3. ENCORAFENIB [Concomitant]
     Active Substance: ENCORAFENIB
     Dates: start: 20201112, end: 20201202

REACTIONS (6)
  - Feeling abnormal [None]
  - Hepatic enzyme increased [None]
  - Nausea [None]
  - Vomiting [None]
  - Aspartate aminotransferase increased [None]
  - Alanine aminotransferase increased [None]

NARRATIVE: CASE EVENT DATE: 20201204
